FAERS Safety Report 9461583 (Version 2)
Quarter: 2013Q3

REPORT INFORMATION
  Report Type: Spontaneous
  Country: AU (occurrence: AU)
  Receive Date: 20130816
  Receipt Date: 20130924
  Transmission Date: 20140515
  Serious: Yes (Disabling, Other)
  Sender: FDA-Public Use
  Company Number: AU-PFIZER INC-2013236985

PATIENT
  Age: 64 Year
  Sex: Female

DRUGS (5)
  1. PRISTIQ [Suspect]
     Indication: DEPRESSION
     Dosage: 150 MG, 1X/DAY
     Route: 048
     Dates: start: 20121210
  2. PRISTIQ [Suspect]
     Indication: BIPOLAR DISORDER
  3. ENABLEX [Suspect]
     Indication: URINARY INCONTINENCE
     Dosage: UNK
     Dates: start: 20130624
  4. LITHIUM [Suspect]
     Indication: BIPOLAR DISORDER
     Dosage: 500 MG, 2X/DAY
     Route: 048
     Dates: start: 20130418, end: 201307
  5. SEROQUEL [Concomitant]
     Indication: BIPOLAR DISORDER
     Dosage: 12.5 MG, 1X/DAY AT NIGHT
     Route: 048
     Dates: start: 20130116

REACTIONS (9)
  - Oedema [Recovering/Resolving]
  - Memory impairment [Recovering/Resolving]
  - Tremor [Recovered/Resolved]
  - Wrong technique in drug usage process [Unknown]
  - Urinary retention [Unknown]
  - Urinary incontinence [Unknown]
  - Dysuria [Unknown]
  - Off label use [Unknown]
  - Toxicity to various agents [Unknown]
